FAERS Safety Report 15986357 (Version 2)
Quarter: 2022Q1

REPORT INFORMATION
  Report Type: Spontaneous
  Country: NL (occurrence: NL)
  Receive Date: 20190220
  Receipt Date: 20220105
  Transmission Date: 20220423
  Serious: Yes (Other)
  Sender: FDA-Public Use
  Company Number: PHHY2018NL124110

PATIENT
  Age: 69 Year
  Sex: Male

DRUGS (7)
  1. AMIODARONE [Interacting]
     Active Substance: AMIODARONE
     Indication: Cardiomyopathy
     Dosage: 200 MG, QD
     Route: 065
     Dates: start: 20150609, end: 20160620
  2. AMIODARONE [Interacting]
     Active Substance: AMIODARONE
     Dosage: 600 MG, QD
     Route: 065
     Dates: end: 20160620
  3. AMIODARONE [Interacting]
     Active Substance: AMIODARONE
     Dosage: 900 MG
     Route: 065
  4. RIFAMPIN [Interacting]
     Active Substance: RIFAMPIN
     Indication: Device related infection
     Dosage: 900 MG, QD
     Route: 065
     Dates: start: 20160610, end: 20160715
  5. FLUCLOXACILLIN [Concomitant]
     Active Substance: FLUCLOXACILLIN
     Indication: Device related infection
     Dosage: UNK
     Route: 042
  6. VANCOMYCIN [Concomitant]
     Active Substance: VANCOMYCIN
     Indication: Device related infection
     Dosage: UNK
     Route: 065
  7. GENTAMICIN [Concomitant]
     Active Substance: GENTAMICIN
     Indication: Device related infection
     Dosage: UNK
     Route: 065
     Dates: start: 2017

REACTIONS (4)
  - Drug interaction [Recovered/Resolved]
  - Drug level below therapeutic [Recovered/Resolved]
  - Drug level decreased [Recovered/Resolved]
  - Product use in unapproved indication [Unknown]

NARRATIVE: CASE EVENT DATE: 20160620
